FAERS Safety Report 8024180-4 (Version None)
Quarter: 2012Q1

REPORT INFORMATION
  Report Type: 
  Country: None (occurrence: None)
  Receive Date: 20120105
  Receipt Date: 20120103
  Transmission Date: 20120608
  Serious: Yes (Death, Other)
  Sender: FDA-Public Use
  Company Number: US-AMGEN-USASP2011023176

PATIENT
  Age: 46 Year
  Sex: Female
  Weight: 49.9 kg

DRUGS (2)
  1. NPLATE [Suspect]
     Indication: IDIOPATHIC THROMBOCYTOPENIC PURPURA
     Dates: start: 20110208
  2. ANTINEOPLASTIC AGENTS [Concomitant]
     Indication: BREAST CANCER METASTATIC

REACTIONS (2)
  - CHOLELITHIASIS [None]
  - NEOPLASM MALIGNANT [None]
